FAERS Safety Report 8553055-7 (Version None)
Quarter: 2012Q3

REPORT INFORMATION
  Report Type: 
  Country: None (occurrence: None)
  Receive Date: 20120731
  Receipt Date: 20120719
  Transmission Date: 20120928
  Serious: Yes (Disabling, Other)
  Sender: FDA-Public Use
  Company Number: JP-SANOFI-AVENTIS-2012SA052285

PATIENT
  Sex: Male

DRUGS (1)
  1. TAXOTERE [Suspect]
     Route: 042

REACTIONS (4)
  - VISUAL FIELD DEFECT [None]
  - ISCHAEMIA [None]
  - OPTIC NEURITIS [None]
  - BLINDNESS UNILATERAL [None]
